FAERS Safety Report 19883670 (Version 1)
Quarter: 2021Q3

REPORT INFORMATION
  Report Type: Spontaneous
  Country: US (occurrence: US)
  Receive Date: 20210923
  Receipt Date: 20210923
  Transmission Date: 20211014
  Serious: No
  Sender: FDA-Public Use
  Company Number: None

PATIENT
  Age: 58 Year
  Sex: Male
  Weight: 60 kg

DRUGS (1)
  1. ISONIAZID (ISONIAZID 300MG TAB) [Suspect]
     Active Substance: ISONIAZID
     Indication: LATENT TUBERCULOSIS
     Dosage: 3 TAB EVERY DAY PO
     Route: 048
     Dates: start: 20210316, end: 20210615

REACTIONS (2)
  - Hepatotoxicity [None]
  - Hepatic enzyme increased [None]

NARRATIVE: CASE EVENT DATE: 20210615
